FAERS Safety Report 23323712 (Version 1)
Quarter: 2023Q4

REPORT INFORMATION
  Report Type: Spontaneous
  Country: US (occurrence: None)
  Receive Date: 20231220
  Receipt Date: 20231220
  Transmission Date: 20240110
  Serious: No
  Sender: FDA-Public Use
  Company Number: US-ROCHE-3449820

PATIENT

DRUGS (3)
  1. RITUXAN [Suspect]
     Active Substance: RITUXIMAB
     Indication: Mantle cell lymphoma
     Dosage: NO
     Route: 065
     Dates: start: 202202
  2. RITUXAN [Suspect]
     Active Substance: RITUXIMAB
     Dosage: MAINTENANCE ;ONGOING: YES
     Route: 065
  3. BENDAMUSTINE [Concomitant]
     Active Substance: BENDAMUSTINE
     Indication: Mantle cell lymphoma

REACTIONS (1)
  - White blood cell count decreased [Unknown]
